FAERS Safety Report 9904966 (Version 3)
Quarter: 2015Q3

REPORT INFORMATION
  Report Type: Spontaneous
  Country: US (occurrence: US)
  Receive Date: 20140218
  Receipt Date: 20150811
  Transmission Date: 20151125
  Serious: Yes (Other)
  Sender: FDA-Public Use
  Company Number: US-GILEAD-2011-0048131

PATIENT
  Age: 55 Year
  Sex: Male
  Weight: 62.27 kg

DRUGS (12)
  1. PROCARDIA XL [Concomitant]
     Active Substance: NIFEDIPINE
  2. OXYGEN. [Concomitant]
     Active Substance: OXYGEN
  3. NEURONTIN [Concomitant]
     Active Substance: GABAPENTIN
  4. REVATIO [Concomitant]
     Active Substance: SILDENAFIL CITRATE
  5. PRILOSEC [Concomitant]
     Active Substance: OMEPRAZOLE MAGNESIUM
  6. COUMADIN [Concomitant]
     Active Substance: WARFARIN SODIUM
  7. LETAIRIS [Suspect]
     Active Substance: AMBRISENTAN
     Indication: SCLERODERMA
  8. LETAIRIS [Suspect]
     Active Substance: AMBRISENTAN
     Indication: CONNECTIVE TISSUE DISORDER
  9. VITAMIN D2 [Concomitant]
     Active Substance: ERGOCALCIFEROL
  10. LETAIRIS [Suspect]
     Active Substance: AMBRISENTAN
     Indication: PULMONARY HYPERTENSION
     Dosage: 5 MG, UNK
     Route: 048
     Dates: start: 20110810, end: 20111213
  11. LASIX [Concomitant]
     Active Substance: FUROSEMIDE
  12. LORCET [Concomitant]
     Active Substance: ACETAMINOPHEN\HYDROCODONE BITARTRATE

REACTIONS (5)
  - Asthenia [Unknown]
  - Malaise [Unknown]
  - Drug ineffective [Unknown]
  - Fatigue [Unknown]
  - Oedema peripheral [Unknown]
